FAERS Safety Report 7050493-9 (Version None)
Quarter: 2010Q4

REPORT INFORMATION
  Report Type: 
  Country: None (occurrence: None)
  Receive Date: 20101018
  Receipt Date: 20101005
  Transmission Date: 20110411
  Serious: Yes (Hospitalization, Other)
  Sender: FDA-Public Use
  Company Number: BR-ELI_LILLY_AND_COMPANY-BR201009004900

PATIENT
  Sex: Female

DRUGS (7)
  1. CYMBALTA [Suspect]
     Indication: DEPRESSION
     Dosage: 60 MG, UNKNOWN
     Route: 065
     Dates: start: 20100901
  2. PASALIX [Concomitant]
     Indication: RELAXATION THERAPY
     Dosage: UNK, DAILY (1/D)
     Route: 065
  3. OMEPRAZOLE [Concomitant]
     Indication: PROPHYLAXIS
     Dosage: 40 MG, DAILY (1/D)
     Route: 065
  4. RIVOTRIL [Concomitant]
     Indication: SLEEP DISORDER
     Dosage: 2.5 UNK, UNKNOWN
     Route: 065
  5. CITALOPRAM HYDROBROMIDE [Concomitant]
     Indication: RELAXATION THERAPY
     Dosage: 40 MG, DAILY (1/D)
     Route: 065
  6. YASMIN [Concomitant]
     Indication: ORAL CONTRACEPTION
     Dosage: UNK, DAILY (1/D)
     Route: 065
  7. FENERGAN /00033001/ [Concomitant]
     Indication: SLEEP DISORDER
     Dosage: 25 MG, AS NEEDED
     Route: 065

REACTIONS (1)
  - SUICIDE ATTEMPT [None]
